FAERS Safety Report 6097292-2 (Version None)
Quarter: 2009Q1

REPORT INFORMATION
  Report Type: 
  Country: None (occurrence: None)
  Receive Date: 20090227
  Receipt Date: 20090105
  Transmission Date: 20090719
  Serious: Yes (Other)
  Sender: FDA-Public Use
  Company Number: US-PFIZER INC-2009152448

PATIENT
  Sex: Female
  Weight: 97.506 kg

DRUGS (22)
  1. LYRICA [Suspect]
     Indication: FIBROMYALGIA
     Dosage: UNK
  2. LYRICA [Suspect]
     Indication: DIABETES MELLITUS
  3. DRUG, UNSPECIFIED [Concomitant]
     Dosage: UNK
  4. LOPRESSOR [Concomitant]
     Dosage: UNK
  5. LEXAPRO [Concomitant]
     Dosage: UNK
  6. ACETYLSALICYLIC ACID [Concomitant]
     Dosage: UNK
  7. COMBIVENT [Concomitant]
     Dosage: UNK
  8. DUONEB [Concomitant]
     Dosage: UNK
  9. NASONEX [Concomitant]
     Dosage: UNK
  10. XANAX [Concomitant]
     Dosage: UNK
  11. NEURONTIN [Concomitant]
     Dosage: UNK
  12. FOLIC ACID [Concomitant]
     Dosage: UNK
  13. ALL OTHER THERAPEUTIC PRODUCTS [Concomitant]
     Dosage: UNK
  14. LASIX [Concomitant]
     Dosage: UNK
  15. AMBIEN [Concomitant]
     Dosage: UNK
  16. LEVSIN [Concomitant]
     Dosage: UNK
  17. GLYCERIN [Concomitant]
     Dosage: UNK
  18. PRILOSEC [Concomitant]
     Dosage: UNK
  19. PROMETHAZINE HYDROCHLORIDE [Concomitant]
  20. ULTRAM [Concomitant]
     Dosage: UNK
  21. LORTAB [Concomitant]
     Dosage: UNK
  22. PERCOCET [Concomitant]
     Dosage: UNK

REACTIONS (7)
  - ABNORMAL BEHAVIOUR [None]
  - FALL [None]
  - PARKINSON'S DISEASE [None]
  - RED BLOOD CELL COUNT DECREASED [None]
  - RENAL DISORDER [None]
  - SLEEP APNOEA SYNDROME [None]
  - WEIGHT DECREASED [None]
